FAERS Safety Report 6636609-4 (Version None)
Quarter: 2010Q1

REPORT INFORMATION
  Report Type: 
  Country: None (occurrence: None)
  Receive Date: 20100311
  Receipt Date: 20100305
  Transmission Date: 20100710
  Serious: Yes (Life-Threatening, Hospitalization)
  Sender: FDA-Public Use
  Company Number: 311279

PATIENT
  Age: 72 Year
  Sex: Male

DRUGS (17)
  1. CYTARABINE [Suspect]
     Indication: ACUTE MYELOID LEUKAEMIA
     Dosage: 20 MG/M2, 1 DAY, SUBCUTANEOUS
     Route: 058
     Dates: start: 20090504, end: 20090513
  2. CYTARABINE [Suspect]
     Indication: ACUTE MYELOID LEUKAEMIA
     Dosage: 20 MG/M2, 1 DAY, SUBCUTANEOUS
     Route: 058
     Dates: start: 20090713, end: 20090722
  3. CYTARABINE [Suspect]
     Indication: ACUTE MYELOID LEUKAEMIA
     Dosage: 20 MG/M2, 1 DAY, SUBCUTANEOUS
     Route: 058
     Dates: start: 20090608
  4. PREDNISOLONE [Concomitant]
  5. OMEPRAZOLE [Concomitant]
  6. (ASPARCAM) [Concomitant]
  7. (ETAMSILATE) [Concomitant]
  8. ENALAPRIL MALEATE [Concomitant]
  9. AMINOCAPROIC ACID [Concomitant]
  10. CARTEOLOL HYDROCHLORIDE [Concomitant]
  11. (GLYCERYL TRINITRATE) [Concomitant]
  12. NIFEDIPINE [Concomitant]
  13. KETOPROFEN [Concomitant]
  14. TRAMADOL HCL [Concomitant]
  15. (EGILOK) [Concomitant]
  16. SIMVASTATIN [Concomitant]
  17. (PERINDOPRIL) [Concomitant]

REACTIONS (8)
  - ACUTE MYOCARDIAL INFARCTION [None]
  - ANGINA PECTORIS [None]
  - ATRIAL FIBRILLATION [None]
  - CARDIAC FAILURE ACUTE [None]
  - HYPERTENSION [None]
  - LEFT VENTRICULAR DYSFUNCTION [None]
  - MYOCARDIAL ISCHAEMIA [None]
  - PULMONARY OEDEMA [None]
